FAERS Safety Report 5913417-0 (Version None)
Quarter: 2008Q4

REPORT INFORMATION
  Report Type: 
  Country: None (occurrence: None)
  Receive Date: 20081009
  Receipt Date: 20080929
  Transmission Date: 20090506
  Serious: Yes (Hospitalization)
  Sender: FDA-Public Use
  Company Number: JP-JNJFOC-20040100631

PATIENT
  Sex: Female
  Weight: 54.7 kg

DRUGS (19)
  1. REMICADE [Suspect]
     Route: 041
  2. REMICADE [Suspect]
     Route: 041
  3. REMICADE [Suspect]
     Route: 041
  4. REMICADE [Suspect]
     Indication: RHEUMATOID ARTHRITIS
     Route: 041
  5. PREDONINE [Suspect]
     Route: 048
  6. PREDONINE [Suspect]
     Route: 048
  7. PREDONINE [Suspect]
     Route: 048
  8. PREDONINE [Suspect]
     Indication: RHEUMATOID ARTHRITIS
     Route: 048
  9. RHEUMATREX [Suspect]
     Route: 048
  10. RHEUMATREX [Suspect]
     Indication: RHEUMATOID ARTHRITIS
     Route: 048
  11. HYPEN [Concomitant]
     Route: 048
  12. VOLTAREN [Concomitant]
     Route: 054
  13. EPADEL [Concomitant]
     Route: 048
  14. REBAMIPIDE [Concomitant]
     Route: 048
  15. ALPROSTADIL [Concomitant]
     Route: 041
  16. HEPARIN [Concomitant]
     Route: 041
  17. HEPARIN [Concomitant]
     Route: 041
  18. PROSTAGLANDIN [Concomitant]
     Route: 065
  19. PROSTAGLANDIN [Concomitant]
     Route: 065

REACTIONS (4)
  - HEPATIC FUNCTION ABNORMAL [None]
  - PNEUMONIA [None]
  - RHEUMATOID ARTHRITIS [None]
  - TUBERCULOSIS [None]
